FAERS Safety Report 23247905 (Version 1)
Quarter: 2023Q4

REPORT INFORMATION
  Report Type: Spontaneous
  Country: US (occurrence: None)
  Receive Date: 20231130
  Receipt Date: 20231130
  Transmission Date: 20240110
  Serious: No
  Sender: FDA-Public Use
  Company Number: None

PATIENT
  Age: 62 Year
  Sex: Male
  Weight: 85.5 kg

DRUGS (2)
  1. PAXLOVID [Suspect]
     Active Substance: NIRMATRELVIR\RITONAVIR
     Indication: COVID-19
     Dates: start: 20231122, end: 20231126
  2. NOVOLOG [Concomitant]
     Active Substance: INSULIN ASPART

REACTIONS (1)
  - COVID-19 [None]

NARRATIVE: CASE EVENT DATE: 20231129
